FAERS Safety Report 14382007 (Version 4)
Quarter: 2018Q2

REPORT INFORMATION
  Report Type: Spontaneous
  Country: US (occurrence: US)
  Receive Date: 20180112
  Receipt Date: 20180426
  Transmission Date: 20180711
  Serious: Yes (Other)
  Sender: FDA-Public Use
  Company Number: US-PFIZER INC-2018016202

PATIENT
  Age: 64 Year
  Sex: Female
  Weight: 109.77 kg

DRUGS (1)
  1. CHANTIX [Suspect]
     Active Substance: VARENICLINE TARTRATE
     Indication: SMOKING CESSATION THERAPY
     Dosage: 5 MG, USE AS DIRECTED (DAY 1-7; DAY 8-23 5 MG-1 MG)
     Dates: start: 20180104, end: 20180109

REACTIONS (3)
  - Mouth swelling [Unknown]
  - Hypersensitivity [Recovered/Resolved]
  - Swollen tongue [Unknown]

NARRATIVE: CASE EVENT DATE: 20180109
